FAERS Safety Report 9099751 (Version 2)
Quarter: 2013Q1

REPORT INFORMATION
  Report Type: Spontaneous
  Country: TN (occurrence: TN)
  Receive Date: 20130215
  Receipt Date: 20130320
  Transmission Date: 20140127
  Serious: Yes (Death)
  Sender: FDA-Public Use
  Company Number: PHHY2013TN014571

PATIENT
  Age: 35 Year
  Sex: Male

DRUGS (2)
  1. GLIVEC [Suspect]
     Indication: CHRONIC MYELOID LEUKAEMIA
     Dosage: 400 MG, QD
     Dates: start: 201206, end: 2012
  2. HYDREA [Concomitant]
     Dosage: 2 G, QD

REACTIONS (4)
  - Hemiparesis [Fatal]
  - Head injury [Fatal]
  - Cerebral haematoma [Fatal]
  - Accident at home [Fatal]
